FAERS Safety Report 7572157-5 (Version None)
Quarter: 2011Q2

REPORT INFORMATION
  Report Type: 
  Country: None (occurrence: None)
  Receive Date: 20110624
  Receipt Date: 20110616
  Transmission Date: 20111010
  Serious: Yes (Hospitalization)
  Sender: FDA-Public Use
  Company Number: US-B.I. PHARMACEUTICALS,INC./RIDGEFIELD-2011-BP-13378BP

PATIENT
  Age: 84 Year
  Sex: Male

DRUGS (46)
  1. LASIX [Concomitant]
     Indication: HYPERTENSION
     Dates: start: 20100101
  2. FLOMAX [Concomitant]
     Indication: PROSTATOMEGALY
     Dosage: 0.4 MG
     Route: 048
  3. HALOPERIDOL [Concomitant]
  4. LABETALOL HCL [Concomitant]
  5. HYDRALAZINE HCL [Concomitant]
  6. IPRATROPIUM BROMIDE [Concomitant]
  7. ZOCOR [Concomitant]
     Indication: BLOOD CHOLESTEROL INCREASED
     Dates: start: 20100101
  8. OMEPRAZOLE [Concomitant]
     Indication: ULCER
     Dosage: 40 MG
     Dates: start: 20090101
  9. ONDANSETRON [Concomitant]
  10. NS [Concomitant]
     Dosage: 10 ML
  11. ZOLPIDEM [Concomitant]
  12. PRADAXA [Suspect]
     Indication: ATRIAL FIBRILLATION
     Dosage: 300 MG
     Route: 048
     Dates: start: 20110311, end: 20110404
  13. SIMVASTATIN [Concomitant]
     Indication: BLOOD CHOLESTEROL INCREASED
     Dates: start: 20100101
  14. MEPERIDINE PF [Concomitant]
  15. FENTANYL CITRATE [Concomitant]
  16. SODIUM CHLORIDE [Concomitant]
  17. ASPIRIN [Concomitant]
     Indication: ROUTINE HEALTH MAINTENANCE
     Dosage: 81 MG
     Dates: start: 20090101
  18. INSULIN LISPRO [Concomitant]
  19. DEXAMETHASONE [Concomitant]
  20. ALBUTEROL SULFATE AUTOHALER [Concomitant]
     Dosage: 4 XDAILY PRN RESP
  21. NITROGLYCERIN [Concomitant]
  22. PRADAXA [Suspect]
     Dosage: 150 MG
     Route: 048
     Dates: start: 20110404, end: 20110509
  23. MELOXICAM [Concomitant]
     Dates: start: 20100101
  24. FENTANYL CITRATE [Concomitant]
  25. ZOLPIDEM [Concomitant]
  26. PREDNISONE [Concomitant]
  27. AMOXICILLIN [Concomitant]
  28. CEFAZOLIN [Concomitant]
  29. OXYCODONE/ACETAMINOPHEN [Concomitant]
  30. HALOPERIDOL [Concomitant]
  31. DIPHENHYDRAMINE HCL [Concomitant]
  32. DIPHENHYDRAMINE HCL [Concomitant]
  33. PHENOL AEROSOL [Concomitant]
  34. FENTANYL CITRATE [Concomitant]
  35. HYDROMORPHONE HCL [Concomitant]
  36. NITROGLYCERIN [Concomitant]
  37. LISINOPRIL [Concomitant]
     Indication: HYPERTENSION
     Dosage: 5 MG
     Route: 048
     Dates: start: 20100101
  38. PROMEHTAZINE [Concomitant]
  39. ACTAMINOPHEN [Concomitant]
  40. ERGOCALCIFEROL [Concomitant]
  41. TOPROL-XL [Concomitant]
     Indication: ATRIAL FIBRILLATION
     Route: 048
  42. TOPROL-XL [Concomitant]
     Indication: HYPERTENSION
  43. ACETAMINOPHEN W/ CODEINE [Concomitant]
  44. OXYCODONE/ACETAMINOPHEN [Concomitant]
  45. LACTATED RINGER'S [Concomitant]
  46. VALSARTAN [Concomitant]

REACTIONS (4)
  - COUGH [None]
  - DYSPNOEA [None]
  - DIZZINESS [None]
  - HEART RATE IRREGULAR [None]
